FAERS Safety Report 6160992-X (Version None)
Quarter: 2009Q2

REPORT INFORMATION
  Report Type: 
  Country: None (occurrence: None)
  Receive Date: 20090420
  Receipt Date: 20090406
  Transmission Date: 20091009
  Serious: Yes (Hospitalization)
  Sender: FDA-Public Use
  Company Number: ES-GILEAD-E2B_00000319

PATIENT
  Age: 78 Year
  Sex: Male

DRUGS (3)
  1. TRUVADA [Suspect]
     Indication: HIV WASTING SYNDROME
     Route: 048
     Dates: start: 20080620, end: 20080701
  2. SEPTRIN COMPRIMIDOS [Suspect]
     Indication: IMMUNODEFICIENCY
     Route: 048
     Dates: start: 20080601, end: 20080703
  3. NEVIRAPINE [Suspect]
     Indication: HIV WASTING SYNDROME
     Route: 048
     Dates: start: 20080620, end: 20080701

REACTIONS (5)
  - FACE OEDEMA [None]
  - MUSCULOSKELETAL PAIN [None]
  - OCULAR HYPERAEMIA [None]
  - PYREXIA [None]
  - RASH [None]
